FAERS Safety Report 8817569 (Version 1)
Quarter: 2012Q4

REPORT INFORMATION
  Report Type: 
  Country: CN (occurrence: CN)
  Receive Date: 20121001
  Receipt Date: 20121001
  Transmission Date: 20130627
  Serious: Yes (Other)
  Sender: FDA-Public Use
  Company Number: CN-ASTRAZENECA-2012SE73072

PATIENT

DRUGS (2)
  1. NEXIUM [Suspect]
     Indication: GASTROENTERITIS
     Dosage: 5 INJECTIONS OF NEXIUM WAS DISSOLVED WITH 0.9 PERCENTAGE NACL SOLUTION 500ML IV FOR 12 HOURS
     Route: 042
  2. NEXIUM [Suspect]
     Indication: POST PROCEDURAL HAEMORRHAGE
     Dosage: 5 INJECTIONS OF NEXIUM WAS DISSOLVED WITH 0.9 PERCENTAGE NACL SOLUTION 500ML IV FOR 12 HOURS
     Route: 042

REACTIONS (1)
  - Off label use [Unknown]
